FAERS Safety Report 14662054 (Version 1)
Quarter: 2018Q1

REPORT INFORMATION
  Report Type: Report from Study
  Country: None (occurrence: US)
  Receive Date: 20180321
  Receipt Date: 20180321
  Transmission Date: 20180509
  Serious: Yes (Hospitalization, Other)
  Sender: FDA-Public Use
  Company Number: US-ABBVIE-18K-163-2287981-00

PATIENT
  Age: 51 Year
  Sex: Male
  Weight: 102.6 kg

DRUGS (13)
  1. RANEXA [Concomitant]
     Active Substance: RANOLAZINE
     Indication: CARDIAC DISORDER
  2. ATORVASTATIN [Concomitant]
     Active Substance: ATORVASTATIN
     Indication: BLOOD CHOLESTEROL
  3. HEPARIN [Concomitant]
     Active Substance: HEPARIN SODIUM
     Indication: THROMBOSIS PROPHYLAXIS
  4. LEVAQUIN [Interacting]
     Active Substance: LEVOFLOXACIN
     Indication: PNEUMONIA
     Route: 048
     Dates: start: 2018
  5. METOPROLOL. [Concomitant]
     Active Substance: METOPROLOL
     Indication: CARDIAC DISORDER
  6. LISINOPRIL. [Concomitant]
     Active Substance: LISINOPRIL
     Indication: CARDIAC DISORDER
  7. CYMBALTA [Concomitant]
     Active Substance: DULOXETINE HYDROCHLORIDE
     Indication: DEPRESSION
  8. ISOSORBIDE. [Concomitant]
     Active Substance: ISOSORBIDE
     Indication: CARDIAC DISORDER
  9. BUSPAR [Concomitant]
     Active Substance: BUSPIRONE HYDROCHLORIDE
     Indication: ANXIETY
  10. FENTANYL. [Concomitant]
     Active Substance: FENTANYL
     Indication: PAIN
  11. HUMIRA [Suspect]
     Active Substance: ADALIMUMAB
     Indication: PSORIATIC ARTHROPATHY
     Route: 058
     Dates: start: 20160324, end: 201712
  12. HUMIRA [Suspect]
     Active Substance: ADALIMUMAB
     Route: 058
     Dates: start: 201803
  13. LEVAQUIN [Interacting]
     Active Substance: LEVOFLOXACIN
     Indication: INFLUENZA
     Dosage: LAST DOSE NIGHT BEFORE DEFIG
     Route: 048
     Dates: start: 201802, end: 201802

REACTIONS (6)
  - Influenza [Recovered/Resolved]
  - Cardiac disorder [Unknown]
  - Pneumonia [Recovered/Resolved]
  - Heart rate increased [Recovered/Resolved]
  - Drug interaction [Recovering/Resolving]
  - Cardiac dysfunction [Unknown]

NARRATIVE: CASE EVENT DATE: 201802
